FAERS Safety Report 8493403-X (Version None)
Quarter: 2012Q3

REPORT INFORMATION
  Report Type: 
  Country: None (occurrence: None)
  Receive Date: 20120706
  Receipt Date: 20120626
  Transmission Date: 20120928
  Serious: Yes (Other)
  Sender: FDA-Public Use
  Company Number: CA-JNJFOC-20120614395

PATIENT
  Age: 60 Year
  Sex: Male

DRUGS (1)
  1. INFLIXIMAB, RECOMBINANT [Suspect]
     Indication: CROHN'S DISEASE
     Dosage: INDUCTION AT WEEKS 0, 2 AND 6
     Route: 042

REACTIONS (2)
  - SYSTEMIC LUPUS ERYTHEMATOSUS [None]
  - DRUG EFFECT DECREASED [None]
